FAERS Safety Report 17955147 (Version 1)
Quarter: 2020Q2

REPORT INFORMATION
  Report Type: Spontaneous
  Country: US (occurrence: US)
  Receive Date: 20200628
  Receipt Date: 20200628
  Transmission Date: 20200714
  Serious: No
  Sender: FDA-Public Use
  Company Number: None

PATIENT
  Age: 76 Year
  Sex: Male
  Weight: 117.5 kg

DRUGS (19)
  1. REMDESIVIR. [Suspect]
     Active Substance: REMDESIVIR
     Indication: COVID-19
     Route: 040
  2. FAMOTIDINE. [Concomitant]
     Active Substance: FAMOTIDINE
     Dates: start: 20200618, end: 20200623
  3. AMIODARONE [Concomitant]
     Active Substance: AMIODARONE
     Dates: start: 20200617, end: 20200623
  4. METOPROLOL. [Concomitant]
     Active Substance: METOPROLOL
     Dates: start: 20200618, end: 20200622
  5. HYDROMORPHONE [Concomitant]
     Active Substance: HYDROMORPHONE
     Dates: start: 20200617, end: 20200623
  6. ATRACURIUM [Concomitant]
     Active Substance: ATRACURIUM
     Dates: start: 20200617, end: 20200623
  7. BUSPIRONE [Concomitant]
     Active Substance: BUSPIRONE HYDROCHLORIDE
     Dates: start: 20200618, end: 20200623
  8. PREGABALIN. [Concomitant]
     Active Substance: PREGABALIN
     Dates: start: 20200618, end: 20200623
  9. POLYETHYLENE GLYCOL [Concomitant]
     Active Substance: POLYETHYLENE GLYCOLS
     Dates: start: 20200618, end: 20200623
  10. EPOPROSTENOL. [Concomitant]
     Active Substance: EPOPROSTENOL
     Dates: start: 20200617, end: 20200617
  11. MIDAZOLAM. [Concomitant]
     Active Substance: MIDAZOLAM
     Dates: start: 20200617, end: 20200623
  12. DOCUSATE [Concomitant]
     Active Substance: DOCUSATE
     Dates: start: 20200618, end: 20200623
  13. FUROSEMIDE. [Concomitant]
     Active Substance: FUROSEMIDE
     Dates: start: 20200617, end: 20200618
  14. NOREPINEPHRINE. [Concomitant]
     Active Substance: NOREPINEPHRINE
     Dates: start: 20200616, end: 20200623
  15. MEMANTINE. [Concomitant]
     Active Substance: MEMANTINE
     Dates: start: 20200618, end: 20200619
  16. SODIUM BICARBONATE. [Concomitant]
     Active Substance: SODIUM BICARBONATE
     Dates: start: 20200619, end: 20200620
  17. SENNA [Concomitant]
     Active Substance: SENNA LEAF\SENNOSIDES\SENNOSIDES A AND B
     Dates: start: 20200617, end: 20200623
  18. VENLAFAXINE [Concomitant]
     Active Substance: VENLAFAXINE HYDROCHLORIDE
     Dates: start: 20200618, end: 20200623
  19. PROPOFOL. [Concomitant]
     Active Substance: PROPOFOL
     Dates: start: 20200617, end: 20200623

REACTIONS (2)
  - General physical health deterioration [None]
  - Blood creatine increased [None]

NARRATIVE: CASE EVENT DATE: 20200619
